FAERS Safety Report 8224553-0 (Version None)
Quarter: 2012Q1

REPORT INFORMATION
  Report Type: 
  Country: None (occurrence: None)
  Receive Date: 20120321
  Receipt Date: 20120318
  Transmission Date: 20120608
  Serious: No
  Sender: FDA-Public Use
  Company Number: US-PFIZER INC-2012070198

PATIENT
  Sex: Male
  Weight: 74.83 kg

DRUGS (3)
  1. CHANTIX [Suspect]
     Indication: SMOKING CESSATION THERAPY
     Dosage: 0.5 MG, DAILY
     Route: 048
     Dates: start: 20120201, end: 20120101
  2. LANTUS [Concomitant]
     Indication: TYPE 1 DIABETES MELLITUS
     Dosage: 30 IU, DAILY
  3. CHANTIX [Suspect]
     Dosage: UNK
     Route: 048
     Dates: start: 20120101, end: 20120311

REACTIONS (1)
  - ABNORMAL DREAMS [None]
